FAERS Safety Report 6431388-8 (Version None)
Quarter: 2009Q4

REPORT INFORMATION
  Report Type: 
  Country: None (occurrence: None)
  Receive Date: 20091106
  Receipt Date: 20091028
  Transmission Date: 20100525
  Serious: Yes (Hospitalization)
  Sender: FDA-Public Use
  Company Number: PHEH2009US14833

PATIENT

DRUGS (1)
  1. EXELON [Suspect]
     Dosage: 9.5 MG, UNK
     Route: 062

REACTIONS (3)
  - AGGRESSION [None]
  - AGITATION [None]
  - IRRITABILITY [None]
